FAERS Safety Report 9060962 (Version 1)
Quarter: 2013Q1

REPORT INFORMATION
  Report Type: Spontaneous
  Country: US (occurrence: US)
  Receive Date: 20130213
  Receipt Date: 20130213
  Transmission Date: 20140127
  Serious: No
  Sender: FDA-Public Use
  Company Number: US-009507513-1302USA004381

PATIENT
  Age: 51 Year
  Sex: Male

DRUGS (1)
  1. INDOCIN I.V. [Suspect]
     Dosage: UNK

REACTIONS (1)
  - Hypersensitivity [Unknown]
